FAERS Safety Report 13405053 (Version 2)
Quarter: 2017Q2

REPORT INFORMATION
  Report Type: Report from Study
  Country: NL (occurrence: NL)
  Receive Date: 20170405
  Receipt Date: 20170417
  Transmission Date: 20170830
  Serious: Yes (Life-Threatening)
  Sender: FDA-Public Use
  Company Number: NL-CELGENEUS-NLD-2017038408

PATIENT
  Age: 65 Year
  Sex: Male

DRUGS (3)
  1. CARFILZOMIB [Suspect]
     Active Substance: CARFILZOMIB
     Indication: PLASMA CELL LEUKAEMIA
     Dosage: 33 MILLIGRAM
     Route: 065
     Dates: start: 20170321, end: 20170321
  2. REVLIMID [Suspect]
     Active Substance: LENALIDOMIDE
     Indication: PLASMA CELL LEUKAEMIA
     Dosage: 25 MILLIGRAM
     Route: 048
     Dates: start: 20170321, end: 20170321
  3. DEXAMETHASONE. [Suspect]
     Active Substance: DEXAMETHASONE
     Indication: PLASMA CELL LEUKAEMIA
     Dosage: 20 MILLIGRAM
     Route: 065
     Dates: start: 20170321, end: 20170321

REACTIONS (1)
  - Acute myocardial infarction [Not Recovered/Not Resolved]

NARRATIVE: CASE EVENT DATE: 20170322
